FAERS Safety Report 25868065 (Version 1)
Quarter: 2025Q4

REPORT INFORMATION
  Report Type: Spontaneous
  Country: US (occurrence: US)
  Receive Date: 20251001
  Receipt Date: 20251001
  Transmission Date: 20260117
  Serious: Yes (Death)
  Sender: MDD OPERATIONS
  Company Number: US-002147023-MDD202503-000867

PATIENT
  Age: 80 Year
  Sex: Female

DRUGS (1)
  1. APOKYN [Suspect]
     Active Substance: APOMORPHINE HYDROCHLORIDE
     Indication: Product used for unknown indication
     Dosage: 3 TIMES A DAY
     Route: 058

REACTIONS (3)
  - COVID-19 [Fatal]
  - Disease complication [Fatal]
  - Hyperhidrosis [Not Recovered/Not Resolved]
